FAERS Safety Report 16801511 (Version 1)
Quarter: 2019Q3

REPORT INFORMATION
  Report Type: Spontaneous
  Country: US (occurrence: US)
  Receive Date: 20190912
  Receipt Date: 20190912
  Transmission Date: 20191005
  Serious: No
  Sender: FDA-Public Use
  Company Number: US-AMNEAL PHARMACEUTICALS-2018AMN00798

PATIENT

DRUGS (1)
  1. GABAPENTIN. [Suspect]
     Active Substance: GABAPENTIN
     Indication: INTERVERTEBRAL DISC PROTRUSION
     Dosage: 2 CAPSULES (AT BEDTIME) (ABOUT FIVE DAYS AGO)
     Route: 048
     Dates: start: 20180904, end: 2018

REACTIONS (3)
  - Back pain [Unknown]
  - Insomnia [Unknown]
  - Restlessness [Unknown]

NARRATIVE: CASE EVENT DATE: 2018
